FAERS Safety Report 9921416 (Version 3)
Quarter: 2015Q1

REPORT INFORMATION
  Report Type: Report from Study
  Country: DK (occurrence: DK)
  Receive Date: 20140225
  Receipt Date: 20150126
  Transmission Date: 20150721
  Serious: Yes (Hospitalization)
  Sender: FDA-Public Use
  Company Number: DK-ROCHE-1337967

PATIENT
  Age: 78 Year
  Sex: Female
  Weight: 64.8 kg

DRUGS (13)
  1. VINCRISTINE [Suspect]
     Active Substance: VINCRISTINE
     Indication: DIFFUSE LARGE B-CELL LYMPHOMA
     Dosage: DATE OF MOST RECENT DOSE OF VINCRISTINE PRIOR TO ANEMIA: 03/JAN/2014?DATE OF MOST RECENT DOSE PRIOR
     Route: 050
     Dates: start: 20131213
  2. PANTOPRAZOLE [Concomitant]
     Active Substance: PANTOPRAZOLE SODIUM
     Indication: PROPHYLAXIS
     Route: 065
     Dates: start: 20131211
  3. APOVIT D-VITAMIN [Concomitant]
     Indication: VITAMIN D DEFICIENCY
  4. FORTUM [Concomitant]
     Active Substance: CEFTAZIDIME
     Indication: INFECTION
     Route: 065
     Dates: start: 20131220, end: 20131227
  5. OBINUTUZUMAB [Suspect]
     Active Substance: OBINUTUZUMAB
     Indication: DIFFUSE LARGE B-CELL LYMPHOMA
     Dosage: DOSE CONCENTRATION OF LAST OBINUTUZUMAB TAKEN: 4MG/ML, DATE OF MOST RECENT DOSE OF OBINUTUZUMAB PRIO
     Route: 042
     Dates: start: 20131213
  6. ALLOPURINOL. [Concomitant]
     Active Substance: ALLOPURINOL
     Indication: TUMOUR LYSIS SYNDROME
     Route: 065
     Dates: start: 20131226, end: 20140121
  7. CYCLOPHOSPHAMIDE. [Suspect]
     Active Substance: CYCLOPHOSPHAMIDE
     Indication: DIFFUSE LARGE B-CELL LYMPHOMA
     Dosage: DATE OF MOST RECENT DOSE PRIOR TO ANEMIA: 03/JAN/2014?DATE OF MOST RECENT DOSE  PRIOR TO FATIGUE: 24
     Route: 042
     Dates: start: 20131213
  8. LOSARTAN [Concomitant]
     Active Substance: LOSARTAN
     Indication: HYPERTENSION
     Route: 065
     Dates: end: 20140113
  9. PREDNISONE. [Suspect]
     Active Substance: PREDNISONE
     Indication: DIFFUSE LARGE B-CELL LYMPHOMA
     Dosage: DATE OF MOST RECENT DOSE OF PREDNISONE PRIOR TO ANEMIA: 07/JAN/2014?DATE OF MOST RECENT DOSE OF PRED
     Route: 048
     Dates: start: 20131213
  10. PARACETAMOL [Concomitant]
     Active Substance: ACETAMINOPHEN
     Indication: PAIN
     Route: 065
     Dates: start: 20131204
  11. DOXORUBICIN [Suspect]
     Active Substance: DOXORUBICIN
     Indication: DIFFUSE LARGE B-CELL LYMPHOMA
     Dosage: DATE OF MOST RECENT DOSE OF DOXORUBICIN PRIOR TO ANEMIA: 03/JAN/2014?DATE OF MOST RECENT DOSE PRIOR
     Route: 042
     Dates: start: 20131213
  12. AMLODIPIN [Concomitant]
     Active Substance: AMLODIPINE BESYLATE
     Indication: HYPERTENSION
     Route: 065
     Dates: end: 20140113
  13. COD LIVER OIL [Concomitant]
     Active Substance: COD LIVER OIL
     Indication: VITAMIN SUPPLEMENTATION

REACTIONS (2)
  - Fatigue [Recovered/Resolved]
  - Anaemia [Recovered/Resolved]

NARRATIVE: CASE EVENT DATE: 20140112
